FAERS Safety Report 7131442-1 (Version None)
Quarter: 2010Q4

REPORT INFORMATION
  Report Type: 
  Country: None (occurrence: None)
  Receive Date: 20101201
  Receipt Date: 20101125
  Transmission Date: 20110411
  Serious: Yes (Hospitalization, Other)
  Sender: FDA-Public Use
  Company Number: PHHO2010GB08837

PATIENT
  Sex: Female

DRUGS (19)
  1. AFINITOR [Suspect]
     Indication: ACUTE MYELOID LEUKAEMIA
     Dosage: UNK
     Route: 048
     Dates: start: 20100519, end: 20100523
  2. AFINITOR [Suspect]
     Dosage: UNK
     Dates: start: 20100525, end: 20100609
  3. ARA-C [Suspect]
     Indication: ACUTE MYELOID LEUKAEMIA
     Dosage: UNK
     Dates: start: 20100519, end: 20100523
  4. DAUNORUBICIN [Concomitant]
  5. ETOPOSIDE [Concomitant]
  6. VANCOMYCIN [Concomitant]
  7. ACICLOVIR [Concomitant]
  8. MEROPENEM [Concomitant]
  9. ONDANSETRON [Concomitant]
  10. POTASSIUM CHLORIDE [Concomitant]
  11. CYCLIZINE [Concomitant]
  12. LOPERAMIDE [Concomitant]
  13. NOZINAN [Concomitant]
  14. ITRACONAZOLE [Concomitant]
  15. ZOPICLON [Concomitant]
  16. VORICONAZOLE [Concomitant]
  17. PHOSPHATE-SANDOZ [Concomitant]
  18. AMILORIDE HYDROCHLORIDE [Concomitant]
  19. PROCHLORPERAZINE [Concomitant]

REACTIONS (3)
  - DRUG INTERACTION [None]
  - FUNGAL INFECTION [None]
  - HYPOPHOSPHATAEMIA [None]
